FAERS Safety Report 20620039 (Version 4)
Quarter: 2025Q3

REPORT INFORMATION
  Report Type: Spontaneous
  Country: CA (occurrence: None)
  Receive Date: 20220322
  Receipt Date: 20250724
  Transmission Date: 20251021
  Serious: Yes (Other)
  Sender: ORION
  Company Number: CA-AMGEN-CANSP2022043094

PATIENT
  Sex: Female

DRUGS (55)
  1. METHOTREXATE [Suspect]
     Active Substance: METHOTREXATE
     Indication: Rheumatoid arthritis
  2. METHOTREXATE [Suspect]
     Active Substance: METHOTREXATE
  3. ENBREL [Suspect]
     Active Substance: ETANERCEPT
     Indication: Rheumatoid arthritis
  4. ENBREL [Suspect]
     Active Substance: ETANERCEPT
  5. RITUXIMAB [Suspect]
     Active Substance: RITUXIMAB
     Indication: Rheumatoid arthritis
  6. RITUXIMAB [Suspect]
     Active Substance: RITUXIMAB
  7. FOLIC ACID [Suspect]
     Active Substance: FOLIC ACID
     Indication: Rheumatoid arthritis
  8. FOLIC ACID [Suspect]
     Active Substance: FOLIC ACID
  9. SULFASALAZINE [Suspect]
     Active Substance: SULFASALAZINE
     Indication: Rheumatoid arthritis
  10. SULFASALAZINE [Suspect]
     Active Substance: SULFASALAZINE
  11. ACTEMRA [Suspect]
     Active Substance: TOCILIZUMAB
     Indication: Rheumatoid arthritis
  12. ACTEMRA [Suspect]
     Active Substance: TOCILIZUMAB
  13. ARAVA [Suspect]
     Active Substance: LEFLUNOMIDE
     Indication: Rheumatoid arthritis
  14. ARAVA [Suspect]
     Active Substance: LEFLUNOMIDE
  15. CETIRIZINE HYDROCHLORIDE [Suspect]
     Active Substance: CETIRIZINE HYDROCHLORIDE
     Indication: Product used for unknown indication
  16. CETIRIZINE HYDROCHLORIDE [Suspect]
     Active Substance: CETIRIZINE HYDROCHLORIDE
  17. CETIRIZINE HYDROCHLORIDE [Suspect]
     Active Substance: CETIRIZINE HYDROCHLORIDE
  18. CIMZIA [Suspect]
     Active Substance: CERTOLIZUMAB PEGOL
     Indication: Rheumatoid arthritis
  19. CORTISONE ACETATE [Suspect]
     Active Substance: CORTISONE ACETATE
     Indication: Rheumatoid arthritis
  20. CORTISONE ACETATE [Suspect]
     Active Substance: CORTISONE ACETATE
  21. FOSAMAX [Suspect]
     Active Substance: ALENDRONATE SODIUM
     Indication: Rheumatoid arthritis
  22. HUMIRA [Suspect]
     Active Substance: ADALIMUMAB
     Indication: Rheumatoid arthritis
  23. HYDROXYCHLOROQUINE SULFATE [Suspect]
     Active Substance: HYDROXYCHLOROQUINE SULFATE
     Indication: Rheumatoid arthritis
  24. HYDROXYCHLOROQUINE SULFATE [Suspect]
     Active Substance: HYDROXYCHLOROQUINE SULFATE
  25. HYDROXYCHLOROQUINE SULFATE [Suspect]
     Active Substance: HYDROXYCHLOROQUINE SULFATE
  26. ORENCIA [Suspect]
     Active Substance: ABATACEPT
     Indication: Rheumatoid arthritis
  27. ORENCIA [Suspect]
     Active Substance: ABATACEPT
  28. ORENCIA [Suspect]
     Active Substance: ABATACEPT
  29. PHTHALYLSULFATHIAZOLE [Suspect]
     Active Substance: PHTHALYLSULFATHIAZOLE
     Indication: Rheumatoid arthritis
  30. REMICADE [Suspect]
     Active Substance: INFLIXIMAB
     Indication: Rheumatoid arthritis
  31. REMICADE [Suspect]
     Active Substance: INFLIXIMAB
  32. REMICADE [Suspect]
     Active Substance: INFLIXIMAB
  33. SIMPONI [Suspect]
     Active Substance: GOLIMUMAB
     Indication: Rheumatoid arthritis
  34. SIMPONI [Suspect]
     Active Substance: GOLIMUMAB
  35. SIMPONI [Suspect]
     Active Substance: GOLIMUMAB
  36. SIMPONI [Suspect]
     Active Substance: GOLIMUMAB
  37. SIMPONI [Suspect]
     Active Substance: GOLIMUMAB
  38. DESOXIMETASONE [Suspect]
     Active Substance: DESOXIMETASONE
     Indication: Rheumatoid arthritis
  39. LEFLUNOMIDE [Suspect]
     Active Substance: LEFLUNOMIDE
     Indication: Rheumatoid arthritis
  40. PREDNISONE [Suspect]
     Active Substance: PREDNISONE
     Indication: Product used for unknown indication
  41. PREDNISONE [Suspect]
     Active Substance: PREDNISONE
  42. CETIRIZINE HYDROCHLORIDE [Suspect]
     Active Substance: CETIRIZINE HYDROCHLORIDE
     Indication: Product used for unknown indication
  43. TOPICORT [Suspect]
     Active Substance: DESOXIMETASONE
     Indication: Rheumatoid arthritis
  44. TOPICORT [Suspect]
     Active Substance: DESOXIMETASONE
  45. CERTOLIZUMAB PEGOL [Suspect]
     Active Substance: CERTOLIZUMAB PEGOL
     Indication: Rheumatoid arthritis
  46. ALENDRONIC ACID [Suspect]
     Active Substance: ALENDRONIC ACID
     Indication: Product used for unknown indication
  47. DICLOFENAC DIETHYLAMINE [Suspect]
     Active Substance: DICLOFENAC DIETHYLAMINE
     Indication: Product used for unknown indication
  48. DICLOFENAC SODIUM [Suspect]
     Active Substance: DICLOFENAC SODIUM
     Indication: Rheumatoid arthritis
  49. DICLOFENAC SODIUM [Suspect]
     Active Substance: DICLOFENAC SODIUM
  50. PREDNISONE ACETATE [Suspect]
     Active Substance: PREDNISONE ACETATE
     Indication: Rheumatoid arthritis
  51. PSEUDOEPHEDRINE HYDROCHLORIDE [Suspect]
     Active Substance: PSEUDOEPHEDRINE HYDROCHLORIDE
     Indication: Product used for unknown indication
  52. ALENDRONATE SODIUM [Suspect]
     Active Substance: ALENDRONATE SODIUM
     Indication: Product used for unknown indication
  53. VOLTAREN [Suspect]
     Active Substance: DICLOFENAC SODIUM
     Indication: Product used for unknown indication
  54. ERELZI [Suspect]
     Active Substance: ETANERCEPT-SZZS
     Indication: Product used for unknown indication
  55. XELJANZ [Concomitant]
     Active Substance: TOFACITINIB CITRATE

REACTIONS (20)
  - Drug ineffective [Unknown]
  - Maternal exposure during pregnancy [Unknown]
  - Off label use [Unknown]
  - Contraindicated product administered [Unknown]
  - Product use issue [Unknown]
  - Intentional product use issue [Unknown]
  - Abdominal discomfort [Not Recovered/Not Resolved]
  - Alopecia [Not Recovered/Not Resolved]
  - Pain [Not Recovered/Not Resolved]
  - Pemphigus [Not Recovered/Not Resolved]
  - Rheumatoid arthritis [Not Recovered/Not Resolved]
  - Systemic lupus erythematosus [Not Recovered/Not Resolved]
  - Wound [Not Recovered/Not Resolved]
  - Arthropathy [Not Recovered/Not Resolved]
  - Fatigue [Not Recovered/Not Resolved]
  - Glossodynia [Not Recovered/Not Resolved]
  - Swelling [Not Recovered/Not Resolved]
  - Hand deformity [Not Recovered/Not Resolved]
  - Discomfort [Not Recovered/Not Resolved]
  - Rash [Not Recovered/Not Resolved]
